FAERS Safety Report 12188849 (Version 1)
Quarter: 2016Q1

REPORT INFORMATION
  Report Type: Other
  Country: US (occurrence: US)
  Receive Date: 20160317
  Receipt Date: 20160317
  Transmission Date: 20160526
  Serious: Yes (Hospitalization)
  Sender: FDA-Public Use
  Company Number: US-MYLANLABS-2015M1036778

PATIENT
  Sex: Female

DRUGS (1)
  1. SOTALOL HYDROCHLORIDE TABLETS, USP (AF) [Suspect]
     Active Substance: SOTALOL HYDROCHLORIDE

REACTIONS (1)
  - Arrhythmia [Unknown]
